FAERS Safety Report 10420196 (Version 1)
Quarter: 2014Q3

REPORT INFORMATION
  Report Type: Report from Study
  Country: US (occurrence: None)
  Receive Date: 20140804
  Receipt Date: 20140804
  Transmission Date: 20150326
  Serious: Yes (Hospitalization)
  Sender: FDA-Public Use
  Company Number: 2012US006335

PATIENT
  Age: 74 Year
  Sex: Male
  Weight: 110.9 kg

DRUGS (18)
  1. ISOSORBIDE (ISOSORBIDE) [Concomitant]
     Active Substance: ISOSORBIDE
  2. GLIPIZIDE (GLIPIZIDE) [Concomitant]
     Active Substance: GLIPIZIDE
  3. AVODART [Concomitant]
     Active Substance: DUTASTERIDE
  4. ASPIRIN (ACETYLSALICYLIC ACID) [Concomitant]
     Active Substance: ASPIRIN
  5. DULCOLAX [Concomitant]
     Active Substance: BISACODYL OR DOCUSATE SODIUM
  6. SPIRIVA [Concomitant]
     Active Substance: TIOTROPIUM BROMIDE MONOHYDRATE
  7. HUMALOG [Concomitant]
     Active Substance: INSULIN LISPRO
  8. TAMSULOSIN (TAMSULOSIN) [Concomitant]
     Active Substance: TAMSULOSIN
  9. GLASSIA [Suspect]
     Active Substance: .ALPHA.1-PROTEINASE INHIBITOR HUMAN
     Indication: ALPHA-1 ANTI-TRYPSIN DEFICIENCY
     Route: 042
     Dates: start: 20110101
  10. PANTOPRAZOLE (PANTOPRAZOLE) [Concomitant]
     Active Substance: PANTOPRAZOLE SODIUM
  11. CINNAMON /01647501/ (CINNAMOMUM VERUM) [Concomitant]
     Active Substance: CINNAMON
  12. ATROVENT [Concomitant]
     Active Substance: IPRATROPIUM BROMIDE
  13. LANTUS [Concomitant]
     Active Substance: INSULIN GLARGINE
  14. GABAPENTIN (GABAPENTIN) [Concomitant]
     Active Substance: GABAPENTIN
  15. PLAVIX [Concomitant]
     Active Substance: CLOPIDOGREL BISULFATE
  16. GEMFIBROZIL (GEMFIBROZIL) [Concomitant]
     Active Substance: GEMFIBROZIL
  17. NORVASC [Concomitant]
     Active Substance: AMLODIPINE BESYLATE
  18. OXYGEN (OXYGEN) [Concomitant]
     Active Substance: OXYGEN

REACTIONS (4)
  - Scrotal swelling [None]
  - Cardiac failure congestive [None]
  - Nephrolithiasis [None]
  - Chest pain [None]

NARRATIVE: CASE EVENT DATE: 201210
